FAERS Safety Report 9737007 (Version 1)
Quarter: 2013Q4

REPORT INFORMATION
  Report Type: Spontaneous
  Country: US (occurrence: US)
  Receive Date: 20131206
  Receipt Date: 20131206
  Transmission Date: 20140711
  Serious: No
  Sender: FDA-Public Use
  Company Number: US-GILEAD-2009-0023132

PATIENT
  Sex: Female

DRUGS (12)
  1. LETAIRIS [Suspect]
     Indication: PULMONARY ARTERIAL HYPERTENSION
     Route: 048
     Dates: start: 20090430
  2. COUMADIN [Concomitant]
  3. COREG [Concomitant]
  4. PRAZOSIN [Concomitant]
  5. AMIODARONE [Concomitant]
  6. PREDNISONE [Concomitant]
  7. SPIRIVA [Concomitant]
  8. ADVAIR [Concomitant]
  9. VERAMYST [Concomitant]
  10. LEVOTHYROXINE [Concomitant]
  11. ALLOPURINOL [Concomitant]
  12. POTASSIUM [Concomitant]

REACTIONS (2)
  - Oedema peripheral [Recovered/Resolved]
  - Weight increased [Recovered/Resolved]
